FAERS Safety Report 9483846 (Version 2)
Quarter: 2013Q3

REPORT INFORMATION
  Report Type: Spontaneous
  Country: CA (occurrence: CA)
  Receive Date: 20130828
  Receipt Date: 20130828
  Transmission Date: 20140515
  Serious: Yes (Death)
  Sender: FDA-Public Use
  Company Number: CA-AMGEN-KDL286981

PATIENT
  Age: 81 Year
  Sex: Female

DRUGS (2)
  1. ENBREL [Suspect]
     Indication: RHEUMATOID ARTHRITIS
     Dosage: UNK UNK, 2 TIMES/WK
     Route: 065
     Dates: start: 20080601
  2. ACETAMINOPHEN [Concomitant]
     Dosage: UNK UNK, UNK

REACTIONS (7)
  - Death [Fatal]
  - Rheumatoid arthritis [Recovering/Resolving]
  - Erythema [Not Recovered/Not Resolved]
  - Swelling face [Not Recovered/Not Resolved]
  - Nasopharyngitis [Not Recovered/Not Resolved]
  - Fall [Unknown]
  - Laceration [Unknown]
